FAERS Safety Report 10069719 (Version 1)
Quarter: 2014Q2

REPORT INFORMATION
  Report Type: Spontaneous
  Country: US (occurrence: None)
  Receive Date: 20140409
  Receipt Date: 20140409
  Transmission Date: 20141212
  Serious: Yes (Hospitalization, Disabling)
  Sender: FDA-Public Use
  Company Number: None

PATIENT
  Age: 21 Year
  Sex: Female
  Weight: 72.58 kg

DRUGS (1)
  1. RISPERIDONE [Suspect]
     Indication: BIPOLAR DISORDER
     Route: 048
     Dates: start: 20140101, end: 20140326

REACTIONS (9)
  - Galactorrhoea [None]
  - Musculoskeletal stiffness [None]
  - Pain in extremity [None]
  - Muscle twitching [None]
  - Dystonia [None]
  - Delusion [None]
  - Confusional state [None]
  - Disorientation [None]
  - Withdrawal syndrome [None]
